FAERS Safety Report 24601417 (Version 1)
Quarter: 2024Q4

REPORT INFORMATION
  Report Type: Report from Study
  Country: IN (occurrence: IN)
  Receive Date: 20241111
  Receipt Date: 20241111
  Transmission Date: 20250114
  Serious: Yes (Hospitalization)
  Sender: ROCHE
  Company Number: IN-ROCHE-10000123042

PATIENT
  Age: 61 Year
  Sex: Female

DRUGS (2)
  1. TECENTRIQ [Suspect]
     Active Substance: ATEZOLIZUMAB
     Indication: Lung cancer metastatic
     Route: 042
     Dates: start: 20241012
  2. AVASTIN [Suspect]
     Active Substance: BEVACIZUMAB
     Indication: Lung cancer metastatic
     Route: 042
     Dates: start: 20241012

REACTIONS (3)
  - Blood potassium decreased [Unknown]
  - Blood sodium decreased [Unknown]
  - Typhoid fever [Unknown]
